FAERS Safety Report 7564230-2 (Version None)
Quarter: 2011Q2

REPORT INFORMATION
  Report Type: 
  Country: None (occurrence: None)
  Receive Date: 20110622
  Receipt Date: 20110609
  Transmission Date: 20111010
  Serious: Yes (Other)
  Sender: FDA-Public Use
  Company Number: HR-BAXTER-2011BH018996

PATIENT
  Age: 4 Year
  Sex: Male
  Weight: 15 kg

DRUGS (4)
  1. DIFLUCAN [Concomitant]
     Indication: ACUTE MYELOID LEUKAEMIA
     Route: 048
  2. SULOTRIM [Concomitant]
     Indication: ACUTE MYELOID LEUKAEMIA
     Route: 048
  3. GAMMAGARD LIQUID [Suspect]
     Indication: HYPOGAMMAGLOBULINAEMIA
     Route: 042
     Dates: start: 20110323, end: 20110323
  4. SILAPEN [Concomitant]
     Indication: ACUTE MYELOID LEUKAEMIA
     Route: 048

REACTIONS (5)
  - TACHYPNOEA [None]
  - CHILLS [None]
  - PYREXIA [None]
  - TACHYCARDIA [None]
  - NAUSEA [None]
